FAERS Safety Report 20770906 (Version 13)
Quarter: 2024Q1

REPORT INFORMATION
  Report Type: Spontaneous
  Country: US (occurrence: US)
  Receive Date: 20220429
  Receipt Date: 20240314
  Transmission Date: 20240410
  Serious: No
  Sender: FDA-Public Use
  Company Number: US-PFIZER INC-202200204783

PATIENT
  Age: 82 Year
  Sex: Female
  Weight: 61.23 kg

DRUGS (8)
  1. INLYTA [Suspect]
     Active Substance: AXITINIB
     Indication: Renal cancer
     Dosage: 5 MG
     Dates: start: 202011
  2. INLYTA [Suspect]
     Active Substance: AXITINIB
     Dosage: 3 MG
  3. INLYTA [Suspect]
     Active Substance: AXITINIB
     Dosage: 3 MG, 2X/DAY
     Dates: start: 202111, end: 2022
  4. INLYTA [Suspect]
     Active Substance: AXITINIB
     Dosage: 10 MG, CYCLIC (4TABS EVERY 12HRS, SAME TIMES EACH DAY)
     Route: 048
  5. INLYTA [Suspect]
     Active Substance: AXITINIB
     Dosage: 4 MG, 2X/DAY, (TK WHOLE W/WATER, W OR W/O FOOD)
     Route: 048
  6. INLYTA [Suspect]
     Active Substance: AXITINIB
     Dosage: 4 MG, 2X/DAY (1MG, 4TABLETS MORNING AND 4TABLETS EVENING)
  7. INLYTA [Suspect]
     Active Substance: AXITINIB
     Dosage: TAKE 4 TABS PO (PER ORAL) Q(EVERY) 12H W OR W/O FOOD AT THE SAME TIME EACH DAY
     Route: 048
  8. KEYTRUDA [Concomitant]
     Active Substance: PEMBROLIZUMAB
     Dosage: UNK
     Dates: start: 202009, end: 202102

REACTIONS (5)
  - Product prescribing error [Unknown]
  - Diarrhoea [Recovering/Resolving]
  - Flatulence [Recovering/Resolving]
  - Aphonia [Unknown]
  - Liver function test increased [Unknown]
